FAERS Safety Report 10150332 (Version 1)
Quarter: 2014Q2

REPORT INFORMATION
  Report Type: Spontaneous
  Country: JP (occurrence: JP)
  Receive Date: 20140502
  Receipt Date: 20140502
  Transmission Date: 20141212
  Serious: Yes (Hospitalization)
  Sender: FDA-Public Use
  Company Number: JP-BRISTOL-MYERS SQUIBB COMPANY-20683199

PATIENT
  Age: 85 Year
  Sex: Male
  Weight: 65 kg

DRUGS (2)
  1. ELIQUIS [Suspect]
     Dosage: TABLET.DOSE REDUCED TO 2.5MG/DAY/ORAL FROM APR14
     Route: 048
     Dates: start: 20131017
  2. MEVALOTIN TABS [Concomitant]

REACTIONS (2)
  - Diverticulitis [Recovered/Resolved]
  - Melaena [Recovered/Resolved]
